FAERS Safety Report 11370768 (Version 2)
Quarter: 2015Q3

REPORT INFORMATION
  Report Type: Spontaneous
  Country: IN (occurrence: IN)
  Receive Date: 20150812
  Receipt Date: 20150818
  Transmission Date: 20151125
  Serious: Yes (Death)
  Sender: FDA-Public Use
  Company Number: IN-009507513-1508IND004128

PATIENT
  Age: 41 Year
  Sex: Male

DRUGS (1)
  1. JANUVIA [Suspect]
     Active Substance: SITAGLIPTIN PHOSPHATE
     Indication: DIABETES MELLITUS
     Dosage: 100 MG, QD
     Route: 048

REACTIONS (1)
  - H1N1 influenza [Fatal]

NARRATIVE: CASE EVENT DATE: 201508
